FAERS Safety Report 9537294 (Version 2)
Quarter: 2013Q4

REPORT INFORMATION
  Report Type: Report from Study
  Country: BR (occurrence: BR)
  Receive Date: 20130919
  Receipt Date: 20131127
  Transmission Date: 20140711
  Serious: No
  Sender: FDA-Public Use
  Company Number: PHHY2013BR103687

PATIENT
  Sex: Female
  Weight: 61 kg

DRUGS (6)
  1. ACLASTA [Suspect]
     Indication: OSTEOPOROSIS
     Dosage: 5 MG, UNK
     Route: 042
     Dates: start: 2011
  2. ACLASTA [Suspect]
     Dosage: 5 MG, UNK
     Route: 042
     Dates: start: 2013
  3. ACLASTA [Suspect]
     Dosage: 5 MG, UNK
     Route: 042
     Dates: start: 20130911
  4. CRESTOR [Concomitant]
     Dosage: UNK UKN, UNK
  5. CALCIUM [Concomitant]
     Dosage: UNK UKN, UNK
  6. ACETYLSALICYLIC ACID [Concomitant]
     Dosage: UNK UKN, UNK

REACTIONS (1)
  - Inappropriate schedule of drug administration [Unknown]
